FAERS Safety Report 7739183-4 (Version None)
Quarter: 2011Q3

REPORT INFORMATION
  Report Type: 
  Country: None (occurrence: None)
  Receive Date: 20110909
  Receipt Date: 20110825
  Transmission Date: 20111222
  Serious: Yes (Hospitalization, Other)
  Sender: FDA-Public Use
  Company Number: US-JNJFOC-20110901154

PATIENT
  Sex: Female
  Weight: 86.18 kg

DRUGS (5)
  1. FENTANYL-100 [Suspect]
     Indication: COMPLEX REGIONAL PAIN SYNDROME
     Route: 062
     Dates: start: 20100101, end: 20100101
  2. DURAGESIC-100 [Suspect]
     Dosage: 25UG/HR+100UG/HR+100UG/HR
     Route: 062
     Dates: start: 20100101, end: 20100101
  3. DURAGESIC-100 [Suspect]
     Indication: COMPLEX REGIONAL PAIN SYNDROME
     Route: 062
  4. DILAUDID [Concomitant]
     Indication: PAIN
     Dosage: AS NEEDED
     Route: 048
  5. NEURONTIN [Concomitant]
     Indication: PAIN
     Route: 048

REACTIONS (12)
  - VEIN DISORDER [None]
  - PRODUCT QUALITY ISSUE [None]
  - DEVICE EXPULSION [None]
  - BLOOD PRESSURE INCREASED [None]
  - DEHYDRATION [None]
  - BURNING SENSATION [None]
  - FALL [None]
  - WRONG TECHNIQUE IN DRUG USAGE PROCESS [None]
  - RASH [None]
  - BLOOD PRESSURE DECREASED [None]
  - PAIN IN EXTREMITY [None]
  - NAUSEA [None]
